FAERS Safety Report 25288058 (Version 1)
Quarter: 2025Q2

REPORT INFORMATION
  Report Type: Spontaneous
  Country: CN (occurrence: CN)
  Receive Date: 20250509
  Receipt Date: 20250509
  Transmission Date: 20250716
  Serious: No
  Sender: ANI
  Company Number: None

PATIENT
  Age: 19 Year
  Sex: Male
  Weight: 50 kg

DRUGS (6)
  1. FLUVOXAMINE MALEATE [Suspect]
     Active Substance: FLUVOXAMINE MALEATE
     Indication: Behaviour disorder
     Route: 048
     Dates: start: 20240222, end: 20240316
  2. VALPROATE SODIUM [Concomitant]
     Active Substance: VALPROATE SODIUM
     Indication: Behaviour disorder
     Route: 048
     Dates: start: 20240222
  3. QUETIAPINE FUMARATE [Concomitant]
     Active Substance: QUETIAPINE FUMARATE
     Indication: Behaviour disorder
     Route: 048
     Dates: start: 20240222
  4. VALPROATE SODIUM [Concomitant]
     Active Substance: VALPROATE SODIUM
     Indication: Emotional disorder
     Route: 048
     Dates: start: 20240222
  5. QUETIAPINE FUMARATE [Concomitant]
     Active Substance: QUETIAPINE FUMARATE
     Indication: Emotional disorder
     Route: 048
     Dates: start: 20240222
  6. FLUVOXAMINE MALEATE [Suspect]
     Active Substance: FLUVOXAMINE MALEATE
     Indication: Emotional disorder
     Route: 048
     Dates: start: 20240222, end: 20240316

REACTIONS (2)
  - Erythema [Recovered/Resolved]
  - Pruritus [Unknown]

NARRATIVE: CASE EVENT DATE: 20240311
